FAERS Safety Report 7815170-2 (Version None)
Quarter: 2011Q4

REPORT INFORMATION
  Report Type: 
  Country: None (occurrence: None)
  Receive Date: 20111014
  Receipt Date: 20111007
  Transmission Date: 20120403
  Serious: Yes (Hospitalization)
  Sender: FDA-Public Use
  Company Number: DE-UCBSA-040211

PATIENT
  Sex: Male
  Weight: 60 kg

DRUGS (6)
  1. ALPHA-BLOCKER [Concomitant]
  2. KEPPRA [Concomitant]
     Indication: CONVULSION
     Dosage: ENTERAL
  3. OXCARBAZEPINE [Suspect]
     Indication: CONVULSION
     Dosage: ENTERAL
  4. ERYTHROCIN LACTOBIONATE [Suspect]
     Indication: GASTROINTESTINAL HYPOMOTILITY
  5. CLONIDINE [Suspect]
     Indication: PROCOAGULANT THERAPY
     Route: 042
  6. VIMPAT [Suspect]
     Dosage: DOSE: 2X100 MG
     Dates: end: 20110808

REACTIONS (1)
  - ATRIOVENTRICULAR BLOCK [None]
